FAERS Safety Report 4574463-5 (Version None)
Quarter: 2005Q1

REPORT INFORMATION
  Report Type: 
  Country: None (occurrence: None)
  Receive Date: 20050204
  Receipt Date: 20050128
  Transmission Date: 20050727
  Serious: Yes (Hospitalization, Disabling)
  Sender: FDA-Public Use
  Company Number: 163-20785-04120285

PATIENT
  Age: 70 Year
  Sex: Male

DRUGS (9)
  1. THALOMID [Suspect]
     Indication: MULTIPLE MYELOMA
     Dosage: 100 MG, QD, ORAL
     Route: 048
     Dates: start: 20040901, end: 20041029
  2. TOPROL (METOPROLOL SUCCINATE) [Concomitant]
  3. INSULIN (HUMAN MIXTARD) [Concomitant]
  4. NITROGLYCERIN [Concomitant]
  5. ACYCLOVIR [Concomitant]
  6. ASPIRIN [Concomitant]
  7. BUMEX [Concomitant]
  8. NEPHROVITE (NEPHRO-VITE RX) [Concomitant]
  9. PERCOCET (PERCOCET-5) [Concomitant]

REACTIONS (16)
  - APHASIA [None]
  - CHEST DISCOMFORT [None]
  - CHEST PAIN [None]
  - CHEST WALL PAIN [None]
  - DECREASED APPETITE [None]
  - DRY EYE [None]
  - DYSAESTHESIA [None]
  - EAR PAIN [None]
  - EATING DISORDER [None]
  - FACIAL PALSY [None]
  - FATIGUE [None]
  - NEUROPATHY PERIPHERAL [None]
  - PARAESTHESIA [None]
  - RED BLOOD CELLS URINE [None]
  - SINUSITIS [None]
  - TINNITUS [None]
